FAERS Safety Report 25168354 (Version 1)
Quarter: 2025Q2

REPORT INFORMATION
  Report Type: Spontaneous
  Country: GB (occurrence: GB)
  Receive Date: 20250407
  Receipt Date: 20250407
  Transmission Date: 20250717
  Serious: Yes (Disabling, Other)
  Sender: DAIICHI
  Company Number: GB-DSJP-DS-2025-132780-GB

PATIENT
  Sex: Female

DRUGS (1)
  1. ENHERTU [Suspect]
     Active Substance: FAM-TRASTUZUMAB DERUXTECAN-NXKI
     Indication: Breast cancer stage IV
     Route: 065

REACTIONS (6)
  - Metastases to central nervous system [Unknown]
  - Cognitive disorder [Unknown]
  - Physical disability [Unknown]
  - Pulmonary toxicity [Unknown]
  - Post procedural infection [Unknown]
  - Brain oedema [Not Recovered/Not Resolved]

NARRATIVE: CASE EVENT DATE: 20240101
